FAERS Safety Report 23818151 (Version 10)
Quarter: 2024Q4

REPORT INFORMATION
  Report Type: Report from Study
  Country: BR (occurrence: BR)
  Receive Date: 20240506
  Receipt Date: 20241122
  Transmission Date: 20250115
  Serious: Yes (Hospitalization, Other)
  Sender: NOVARTIS
  Company Number: BR-002147023-NVSC2024BR092367

PATIENT
  Age: 51 Year
  Sex: Female

DRUGS (6)
  1. COSENTYX [Suspect]
     Active Substance: SECUKINUMAB
     Indication: Ankylosing spondylitis
     Dosage: UNK
     Route: 065
     Dates: start: 20240418
  2. COSENTYX [Suspect]
     Active Substance: SECUKINUMAB
     Dosage: UNK
     Route: 065
     Dates: start: 20240425
  3. COSENTYX [Suspect]
     Active Substance: SECUKINUMAB
     Dosage: UNK (AGAIN ADMINISTERED FIRST DOSE)
     Route: 065
     Dates: start: 20240529
  4. COSENTYX [Suspect]
     Active Substance: SECUKINUMAB
     Dosage: UNK (SECOND DOSE)
     Route: 065
     Dates: start: 20240605
  5. COSENTYX [Suspect]
     Active Substance: SECUKINUMAB
     Dosage: UNK, QMO (MAINTENANCE DOSES)
     Route: 065
  6. COSENTYX [Suspect]
     Active Substance: SECUKINUMAB
     Dosage: UNK
     Route: 065
     Dates: start: 202408

REACTIONS (21)
  - Pneumonia influenzal [Recovered/Resolved]
  - Throat irritation [Recovered/Resolved]
  - Malaise [Recovering/Resolving]
  - Tracheal pain [Unknown]
  - Cough [Recovered/Resolved]
  - Secretion discharge [Recovered/Resolved]
  - Pneumonia [Recovering/Resolving]
  - Pharyngitis [Recovering/Resolving]
  - Pneumonia [Recovered/Resolved]
  - Decreased immune responsiveness [Recovered/Resolved]
  - Illness [Recovered/Resolved]
  - Influenza [Recovered/Resolved]
  - Influenza [Recovered/Resolved]
  - Sinusitis [Recovered/Resolved]
  - Headache [Recovered/Resolved]
  - Decreased immune responsiveness [Recovered/Resolved]
  - Herpes zoster reactivation [Recovered/Resolved]
  - Candida infection [Recovering/Resolving]
  - Inappropriate schedule of product administration [Unknown]
  - Decreased immune responsiveness [Recovering/Resolving]
  - Ill-defined disorder [Recovering/Resolving]

NARRATIVE: CASE EVENT DATE: 20240418
